FAERS Safety Report 16940679 (Version 1)
Quarter: 2019Q4

REPORT INFORMATION
  Report Type: Spontaneous
  Country: US (occurrence: US)
  Receive Date: 20190828
  Receipt Date: 20190828
  Transmission Date: 20200122
  Serious: No
  Sender: FDA-Public Use
  Company Number: None

PATIENT
  Age: 65 Year
  Sex: Female
  Weight: 55.79 kg

DRUGS (7)
  1. LASIX [Concomitant]
     Active Substance: FUROSEMIDE
  2. DOXIL [Suspect]
     Active Substance: DOXORUBICIN HYDROCHLORIDE
     Dates: end: 20190724
  3. BEVACIZUMAB (RHUMAB VEGF) [Suspect]
     Active Substance: BEVACIZUMAB
     Dates: end: 20190807
  4. FAMOTIDINE. [Concomitant]
     Active Substance: FAMOTIDINE
  5. ZYRTEC [Concomitant]
     Active Substance: CETIRIZINE HYDROCHLORIDE
  6. AMLODIPINE BESYLATE AND BENAZEPRIL HYDROCHLORIDE [Concomitant]
     Active Substance: AMLODIPINE BESYLATE\BENAZEPRIL HYDROCHLORIDE
  7. MOTRIN [Concomitant]
     Active Substance: IBUPROFEN

REACTIONS (19)
  - Lymphocyte count decreased [None]
  - Hypertension [None]
  - Haematocrit decreased [None]
  - Hepatic enzyme increased [None]
  - Dehydration [None]
  - Blood sodium decreased [None]
  - Glomerular filtration rate decreased [None]
  - Blood glucose increased [None]
  - Blood magnesium increased [None]
  - Platelet count decreased [None]
  - Red cell distribution width increased [None]
  - White blood cell count decreased [None]
  - Red blood cell count decreased [None]
  - Haemoglobin decreased [None]
  - Monocyte count increased [None]
  - Blood creatinine increased [None]
  - Immunoglobulins increased [None]
  - Carbon dioxide decreased [None]
  - Blood calcium decreased [None]

NARRATIVE: CASE EVENT DATE: 20190819
